FAERS Safety Report 13164069 (Version 1)
Quarter: 2017Q1

REPORT INFORMATION
  Report Type: Spontaneous
  Country: US (occurrence: US)
  Receive Date: 20170130
  Receipt Date: 20170130
  Transmission Date: 20170428
  Serious: Yes (Hospitalization)
  Sender: FDA-Public Use
  Company Number: US-LPDUSPRD-20170057

PATIENT
  Age: 45 Year
  Sex: Female

DRUGS (4)
  1. METHYLPREDNISOLONE. [Suspect]
     Active Substance: METHYLPREDNISOLONE
     Dosage: 80 MG
     Route: 008
  2. BETAMETHASONE SODIUM PHOS/BETAMETHASONE ACETATE INJ SUSP, USP (40042-0 [Suspect]
     Active Substance: BETAMETHASONE ACETATE\BETAMETHASONE SODIUM PHOSPHATE
     Dosage: 12 MG
     Route: 008
  3. LIDOCAINE HCL INJECTION, USP (0517-9402-01) [Concomitant]
     Active Substance: LIDOCAINE HYDROCHLORIDE
     Dosage: DOSE UNKNOWN
     Route: 058
  4. LIDOCAINE 0.5% [Suspect]
     Active Substance: LIDOCAINE
     Dosage: TWO MILLILITERS
     Route: 008

REACTIONS (3)
  - Off label use [Unknown]
  - Pneumocephalus [Recovered/Resolved]
  - Meningitis chemical [Recovered/Resolved]
